FAERS Safety Report 8574318-5 (Version None)
Quarter: 2012Q3

REPORT INFORMATION
  Report Type: 
  Country: None (occurrence: None)
  Receive Date: 20120806
  Receipt Date: 20120724
  Transmission Date: 20120928
  Serious: Yes (Other)
  Sender: FDA-Public Use
  Company Number: CHPA2012IT015999

PATIENT
  Sex: Female

DRUGS (1)
  1. IBUPROFEN [Suspect]
     Indication: ANTIINFLAMMATORY THERAPY
     Dosage: UNK, UNK
     Dates: start: 20120712, end: 20120712

REACTIONS (2)
  - DYSPNOEA [None]
  - URTICARIA [None]
